FAERS Safety Report 9401750 (Version 1)
Quarter: 2013Q3

REPORT INFORMATION
  Report Type: Spontaneous
  Country: US (occurrence: US)
  Receive Date: 20130716
  Receipt Date: 20130716
  Transmission Date: 20140515
  Serious: No
  Sender: FDA-Public Use
  Company Number: US-BIOGENIDEC-2013BI063986

PATIENT
  Age: 32 Year
  Sex: Female

DRUGS (1)
  1. TYSABRI [Suspect]
     Indication: MULTIPLE SCLEROSIS
     Route: 042
     Dates: start: 20080131

REACTIONS (5)
  - Pain in extremity [Recovered/Resolved]
  - Blepharospasm [Recovered/Resolved]
  - White blood cell count increased [Unknown]
  - Laboratory test abnormal [Unknown]
  - Viral infection [Recovered/Resolved]
